FAERS Safety Report 19451156 (Version 1)
Quarter: 2021Q2

REPORT INFORMATION
  Report Type: Spontaneous
  Country: US (occurrence: US)
  Receive Date: 20210622
  Receipt Date: 20210622
  Transmission Date: 20210717
  Serious: Yes (Disabling)
  Sender: FDA-Public Use
  Company Number: None

PATIENT
  Age: 10 Year
  Sex: Male
  Weight: 49.9 kg

DRUGS (4)
  1. SMOOTH LAX [Suspect]
     Active Substance: POLYETHYLENE GLYCOL 3350
  2. POLYETHYLENE GLYCOL [Suspect]
     Active Substance: POLYETHYLENE GLYCOLS
  3. CLEARLAX [Suspect]
     Active Substance: POLYETHYLENE GLYCOL 3350
  4. MIRALAX [Suspect]
     Active Substance: POLYETHYLENE GLYCOL 3350
     Indication: CONSTIPATION
     Dosage: ?          OTHER FREQUENCY:SEVERAL TIME A DAY;?
     Route: 048
     Dates: start: 2014, end: 2020

REACTIONS (4)
  - Intentional self-injury [None]
  - Injury [None]
  - Anger [None]
  - Tic [None]

NARRATIVE: CASE EVENT DATE: 2014
